FAERS Safety Report 14557268 (Version 1)
Quarter: 2018Q1

REPORT INFORMATION
  Report Type: Spontaneous
  Country: US (occurrence: US)
  Receive Date: 20180220
  Receipt Date: 20180220
  Transmission Date: 20180509
  Serious: Yes (Death)
  Sender: FDA-Public Use
  Company Number: None

PATIENT
  Sex: Female

DRUGS (1)
  1. LEUCOVORIN 25MG [Suspect]
     Active Substance: LEUCOVORIN CALCIUM
     Indication: PINEAL PARENCHYMAL NEOPLASM MALIGNANT
     Dosage: 4 TIMES A DAY X 2DS
     Route: 048

REACTIONS (1)
  - Death [None]
